FAERS Safety Report 5155671-1 (Version None)
Quarter: 2006Q4

REPORT INFORMATION
  Report Type: 
  Country: None (occurrence: None)
  Receive Date: 20061114
  Receipt Date: 20061103
  Transmission Date: 20070319
  Serious: Yes (Death)
  Sender: FDA-Public Use
  Company Number: GXKR2006US07079

PATIENT
  Age: 28 Year
  Sex: Male

DRUGS (1)
  1. VERAPAMIL [Suspect]
     Indication: MIGRAINE
     Dosage: 480 MG, ORAL
     Route: 048

REACTIONS (7)
  - ACUTE RESPIRATORY DISTRESS SYNDROME [None]
  - ATRIOVENTRICULAR BLOCK [None]
  - DRUG ABUSER [None]
  - DRUG TOXICITY [None]
  - INCORRECT DOSE ADMINISTERED [None]
  - OVERDOSE [None]
  - RENAL FAILURE ACUTE [None]
